FAERS Safety Report 6976983-2 (Version None)
Quarter: 2010Q3

REPORT INFORMATION
  Report Type: 
  Country: None (occurrence: None)
  Receive Date: 20100910
  Receipt Date: 20100901
  Transmission Date: 20110219
  Serious: Yes (Death, Hospitalization)
  Sender: FDA-Public Use
  Company Number: ES-ROCHE-724808

PATIENT
  Sex: Female
  Weight: 87 kg

DRUGS (9)
  1. BEVACIZUMAB [Suspect]
     Indication: COLORECTAL CANCER
     Route: 042
  2. CAPECITABINE [Suspect]
     Indication: COLORECTAL CANCER
     Dosage: DATE OF LAST DOSE PRIOR TO SAE: 24 JUNE 2010
     Route: 048
     Dates: start: 20100614
  3. IRINOTECAN HCL [Suspect]
     Indication: COLORECTAL CANCER
     Dosage: DATE OF LAST DOSE PRIOR TO SAE: 14 JUNE 2010.
     Route: 042
     Dates: start: 20100614
  4. EMCONCOR [Concomitant]
  5. ASPIRIN [Concomitant]
  6. NITRODUR II [Concomitant]
     Dosage: REPORTED AS NITRODUR
  7. OMEPRAZOLE [Concomitant]
  8. ANASMA [Concomitant]
  9. LORMETAZEPAM [Concomitant]

REACTIONS (1)
  - PULMONARY EMBOLISM [None]
